FAERS Safety Report 4854786-2 (Version None)
Quarter: 2005Q4

REPORT INFORMATION
  Report Type: 
  Country: None (occurrence: None)
  Receive Date: 20051215
  Receipt Date: 20051214
  Transmission Date: 20060501
  Serious: Yes (Other)
  Sender: FDA-Public Use
  Company Number: US-GLAXOSMITHKLINE-A0585807A

PATIENT
  Age: 26 Year
  Sex: Male

DRUGS (1)
  1. DEBROX DROPS [Suspect]
     Route: 001
     Dates: start: 20051213, end: 20051213

REACTIONS (1)
  - EAR HAEMORRHAGE [None]
